FAERS Safety Report 17903463 (Version 1)
Quarter: 2020Q2

REPORT INFORMATION
  Report Type: Spontaneous
  Country: US (occurrence: US)
  Receive Date: 20200616
  Receipt Date: 20200616
  Transmission Date: 20200714
  Serious: Yes (Other)
  Sender: FDA-Public Use
  Company Number: US-MALLINCKRODT-T202002713

PATIENT
  Sex: Female

DRUGS (3)
  1. H.P. ACTHAR [Suspect]
     Active Substance: CORTICOTROPIN
     Indication: RHEUMATOID ARTHRITIS
     Dosage: UNK
     Route: 065
     Dates: end: 202004
  2. H.P. ACTHAR [Suspect]
     Active Substance: CORTICOTROPIN
     Indication: POLYMYALGIA RHEUMATICA
  3. H.P. ACTHAR [Suspect]
     Active Substance: CORTICOTROPIN
     Indication: TEMPORAL ARTERITIS
     Dosage: 1 MILLILITER, BIW
     Route: 058
     Dates: start: 202003

REACTIONS (3)
  - Incision site complication [Unknown]
  - Renal surgery [Unknown]
  - Renal disorder [Unknown]

NARRATIVE: CASE EVENT DATE: 2020
